FAERS Safety Report 9087085 (Version 1)
Quarter: 2013Q1

REPORT INFORMATION
  Report Type: Report from Study
  Country: US (occurrence: US)
  Receive Date: 20130201
  Receipt Date: 20130201
  Transmission Date: 20140127
  Serious: No
  Sender: FDA-Public Use
  Company Number: US-ABBOTT-12P-163-1025727-00

PATIENT
  Age: 52 None
  Sex: Female
  Weight: 62.65 kg

DRUGS (11)
  1. HUMIRA [Suspect]
     Indication: RHEUMATOID ARTHRITIS
     Dates: start: 201210, end: 201212
  2. HUMIRA [Suspect]
     Dates: start: 20121211
  3. METHOTREXATE [Concomitant]
     Indication: RHEUMATOID ARTHRITIS
  4. METHADONE [Concomitant]
     Indication: MUSCLE ATROPHY
  5. METHADONE [Concomitant]
     Indication: OSTEOARTHRITIS
  6. METHADONE [Concomitant]
     Indication: NECK PAIN
  7. HYDROCHLOROTHIAZIDE [Concomitant]
     Indication: NEPHROLITHIASIS
  8. ZOLOFT [Concomitant]
     Indication: DEPRESSION
  9. NORCO [Concomitant]
     Indication: PAIN
  10. PREDNISONE [Concomitant]
     Indication: RHEUMATOID ARTHRITIS
  11. PROPRANOLOL [Concomitant]
     Indication: TREMOR

REACTIONS (6)
  - Drug effect decreased [Not Recovered/Not Resolved]
  - Local swelling [Not Recovered/Not Resolved]
  - Pain [Not Recovered/Not Resolved]
  - Pain [Not Recovered/Not Resolved]
  - Muscle spasms [Not Recovered/Not Resolved]
  - Neck pain [Not Recovered/Not Resolved]
